FAERS Safety Report 9070521 (Version 1)
Quarter: 2013Q1

REPORT INFORMATION
  Report Type: Spontaneous
  Country: CA (occurrence: CA)
  Receive Date: 20130215
  Receipt Date: 20130215
  Transmission Date: 20140127
  Serious: Yes (Hospitalization, Other)
  Sender: FDA-Public Use
  Company Number: CA-JNJFOC-20110200976

PATIENT
  Age: 64 None
  Sex: Male
  Weight: 154 kg

DRUGS (15)
  1. REMICADE [Suspect]
     Indication: PSORIATIC ARTHROPATHY
     Dosage: 5MG/KG??APPROXIMATELY 10 INFUSIONS
     Route: 042
     Dates: start: 20100708, end: 20120920
  2. REMICADE [Suspect]
     Indication: PSORIASIS
     Dosage: 5MG/KG??APPROXIMATELY 10 INFUSIONS
     Route: 042
     Dates: start: 20100708, end: 20120920
  3. ASA [Concomitant]
     Route: 048
  4. METOPROLOL [Concomitant]
     Route: 048
  5. AVAPRO [Concomitant]
     Route: 048
  6. CHOLESTYRAMINE [Concomitant]
     Route: 065
  7. LYDERM 0.05% [Concomitant]
     Route: 065
  8. CELEBREX [Concomitant]
     Route: 065
  9. ARISTOCORT A [Concomitant]
     Route: 065
  10. BENADRYL [Concomitant]
     Indication: PREMEDICATION
     Route: 042
     Dates: start: 20111102
  11. ECASA [Concomitant]
     Route: 065
  12. DICETEL [Concomitant]
     Route: 065
  13. PREVACID [Concomitant]
     Route: 065
  14. CHOLESTYRAMINE [Concomitant]
     Dosage: 1 TABLET
     Route: 065
  15. CELEBREX [Concomitant]
     Route: 065

REACTIONS (11)
  - Cyanosis [Recovered/Resolved]
  - Dyspnoea [Recovered/Resolved]
  - Chest discomfort [Recovered/Resolved]
  - Hypotension [Recovered/Resolved]
  - Chest pain [Recovered/Resolved]
  - Infusion related reaction [Recovered/Resolved]
  - Pyrexia [Recovered/Resolved]
  - Hyperhidrosis [Recovered/Resolved]
  - Pruritus [Recovered/Resolved]
  - Erythema [Recovered/Resolved]
  - Urticaria [Recovered/Resolved]
